FAERS Safety Report 4631837-1 (Version None)
Quarter: 2005Q2

REPORT INFORMATION
  Report Type: 
  Country: None (occurrence: None)
  Receive Date: 20050411
  Receipt Date: 20050330
  Transmission Date: 20051028
  Serious: Yes (Life-Threatening, Other)
  Sender: FDA-Public Use
  Company Number: US-JNJFOC-20050100386

PATIENT
  Sex: Male
  Weight: 101.61 kg

DRUGS (2)
  1. REMICADE [Suspect]
     Route: 042
  2. REMICADE [Suspect]
     Indication: CROHN'S DISEASE
     Route: 042

REACTIONS (9)
  - ARRHYTHMIA [None]
  - CHEST PAIN [None]
  - DYSPNOEA [None]
  - EXOPHTHALMOS [None]
  - FLUSHING [None]
  - HALLUCINATION [None]
  - HEADACHE [None]
  - INFUSION RELATED REACTION [None]
  - PAIN [None]
